FAERS Safety Report 16649878 (Version 1)
Quarter: 2019Q3

REPORT INFORMATION
  Report Type: Spontaneous
  Country: KR (occurrence: KR)
  Receive Date: 20190731
  Receipt Date: 20190731
  Transmission Date: 20191004
  Serious: Yes (Hospitalization, Other)
  Sender: FDA-Public Use
  Company Number: KR-LUPIN PHARMACEUTICALS INC.-2019-03211

PATIENT
  Age: 69 Year
  Sex: Female

DRUGS (8)
  1. ZOLPIDEM [Suspect]
     Active Substance: ZOLPIDEM TARTRATE
     Indication: HEADACHE
     Dosage: 10 MILLIGRAM, QD
     Route: 065
  2. DIPHENHYDRAMINE. [Suspect]
     Active Substance: DIPHENHYDRAMINE
     Indication: INSOMNIA
  3. ZOLPIDEM [Suspect]
     Active Substance: ZOLPIDEM TARTRATE
     Dosage: UNK UNK, QD,  (50-60 MG DAILY)
     Route: 065
  4. DIPHENHYDRAMINE. [Suspect]
     Active Substance: DIPHENHYDRAMINE
     Indication: HEADACHE
     Dosage: UNK UNK, QD (100-250 MG)
     Route: 065
  5. PANPYRIN [ACETAMINOPHEN\CAFFEINE\CHLORPHENIRAMINE\ETHENZAMIDE] [Suspect]
     Active Substance: ACETAMINOPHEN\CAFFEINE\CHLORPHENIRAMINE\ETHENZAMIDE
     Indication: HEADACHE
     Dosage: UNK UNK, QD (FIVE BOTTLES DAILY)
     Route: 048
  6. PANPYRIN [ACETAMINOPHEN\CAFFEINE\CHLORPHENIRAMINE\ETHENZAMIDE] [Suspect]
     Active Substance: ACETAMINOPHEN\CAFFEINE\CHLORPHENIRAMINE\ETHENZAMIDE
     Indication: INSOMNIA
     Dosage: UNK UNK, QD, (TWO BOTTLES ON DAILY BASIS)
     Route: 065
  7. ZOLPIDEM [Suspect]
     Active Substance: ZOLPIDEM TARTRATE
     Indication: INSOMNIA
     Dosage: UNK, (INCREASED DOSE AGAINST HER PHYSICIAN ADVICE)
     Route: 065
  8. ZOLPIDEM [Suspect]
     Active Substance: ZOLPIDEM TARTRATE
     Dosage: UNK, (TAPERED OFF FOR 14 DAYS)
     Route: 065

REACTIONS (6)
  - Drug abuse [Unknown]
  - Confusional state [Unknown]
  - Fall [Unknown]
  - Overdose [Unknown]
  - Drug dependence [Unknown]
  - Somnambulism [Recovered/Resolved]
